FAERS Safety Report 11967899 (Version 2)
Quarter: 2016Q1

REPORT INFORMATION
  Report Type: Spontaneous
  Country: US (occurrence: US)
  Receive Date: 20160127
  Receipt Date: 20160303
  Transmission Date: 20160526
  Serious: No
  Sender: FDA-Public Use
  Company Number: US-CELGENEUS-USA-2015115959

PATIENT
  Age: 72 Year
  Sex: Female

DRUGS (2)
  1. REVLIMID [Suspect]
     Active Substance: LENALIDOMIDE
     Indication: PLASMA CELL MYELOMA
     Route: 048
     Dates: start: 20150724
  2. REVLIMID [Suspect]
     Active Substance: LENALIDOMIDE
     Route: 048
     Dates: start: 20151116

REACTIONS (5)
  - Fatigue [Unknown]
  - Nervousness [Unknown]
  - Diarrhoea [Recovered/Resolved]
  - Drug intolerance [Unknown]
  - Decreased appetite [Unknown]

NARRATIVE: CASE EVENT DATE: 20151111
